FAERS Safety Report 12630003 (Version 3)
Quarter: 2016Q4

REPORT INFORMATION
  Report Type: Report from Study
  Country: IT (occurrence: IT)
  Receive Date: 20160808
  Receipt Date: 20161010
  Transmission Date: 20170207
  Serious: Yes (Death, Life-Threatening)
  Sender: FDA-Public Use
  Company Number: IT-JNJFOC-20160801099

PATIENT
  Age: 67 Year
  Sex: Male
  Weight: 92 kg

DRUGS (6)
  1. ABIRATERONE ACETATE [Suspect]
     Active Substance: ABIRATERONE ACETATE
     Indication: PROSTATE CANCER METASTATIC
     Route: 048
     Dates: start: 20130822, end: 201607
  2. ENANTONE LP [Concomitant]
     Active Substance: LEUPROLIDE ACETATE
     Route: 065
     Dates: start: 20130620, end: 20160729
  3. PREDNISONE. [Suspect]
     Active Substance: PREDNISONE
     Indication: PROSTATE CANCER METASTATIC
     Route: 048
     Dates: start: 20130822, end: 201607
  4. ABIRATERONE ACETATE [Suspect]
     Active Substance: ABIRATERONE ACETATE
     Route: 048
  5. CARDIOASPIRIN [Concomitant]
     Active Substance: ASPIRIN
     Route: 048
     Dates: start: 2011, end: 20160729
  6. QUINAPRIL. [Concomitant]
     Active Substance: QUINAPRIL
     Route: 048
     Dates: start: 20160324, end: 20160729

REACTIONS (1)
  - Cerebrovascular accident [Fatal]

NARRATIVE: CASE EVENT DATE: 20160728
